FAERS Safety Report 20195503 (Version 1)
Quarter: 2021Q4

REPORT INFORMATION
  Report Type: Spontaneous
  Country: NL (occurrence: NL)
  Receive Date: 20211216
  Receipt Date: 20211216
  Transmission Date: 20220303
  Serious: Yes (Hospitalization)
  Sender: FDA-Public Use
  Company Number: None

PATIENT
  Age: 49 Year
  Sex: Male
  Weight: 50 kg

DRUGS (7)
  1. ATORVASTATIN [Suspect]
     Active Substance: ATORVASTATIN
     Indication: Blood cholesterol
     Dosage: 1 X PER DAG 1 STUK
     Dates: start: 202107, end: 20211011
  2. PANTOPRAZOLE SODIUM [Concomitant]
     Active Substance: PANTOPRAZOLE SODIUM
     Dosage: MAAGSAPRESISTENTE TABLET, 40 MG (MILLIGRAM)
  3. METOPROLOL [Concomitant]
     Active Substance: METOPROLOL
     Dosage: MODIFIED RELEASE TABLET, 50 MG (MILLIGRAM)
  4. LISINOPRIL [Concomitant]
     Active Substance: LISINOPRIL
     Dosage: TABLET, 20 MG (MILLIGRAM)
  5. DIAZEPAM [Concomitant]
     Active Substance: DIAZEPAM
     Dosage: TABLET, 5 MG (MILLIGRAM)
  6. ASPIRIN [Concomitant]
     Active Substance: ASPIRIN
     Dosage: TABLET, 80 MG (MILLIGRAM)
  7. TICAGRELOR [Concomitant]
     Active Substance: TICAGRELOR
     Dosage: TABLET, 90 MG (MILLIGRAM)

REACTIONS (4)
  - Rhabdomyolysis [Recovered/Resolved]
  - Chest pain [Recovered/Resolved]
  - Myalgia [Recovered/Resolved]
  - Pain in extremity [Recovered/Resolved]

NARRATIVE: CASE EVENT DATE: 20210701
